FAERS Safety Report 7979187-X (Version None)
Quarter: 2011Q4

REPORT INFORMATION
  Report Type: 
  Country: None (occurrence: None)
  Receive Date: 20111206
  Receipt Date: 20111122
  Transmission Date: 20120403
  Serious: Yes (Other)
  Sender: FDA-Public Use
  Company Number: 2011SP054956

PATIENT
  Sex: Female

DRUGS (4)
  1. TELAPREVIR [Suspect]
     Indication: HEPATITIS C
     Dates: start: 20110920
  2. PEG-INTRON [Suspect]
     Indication: HEPATITIS C
     Dates: start: 20110920
  3. INCIVEK [Suspect]
  4. RIBAVIRIN [Suspect]
     Indication: HEPATITIS C
     Dates: start: 20110920

REACTIONS (11)
  - DECREASED APPETITE [None]
  - VOMITING [None]
  - BLOOD POTASSIUM DECREASED [None]
  - WHITE BLOOD CELL COUNT DECREASED [None]
  - HEADACHE [None]
  - RED BLOOD CELL COUNT DECREASED [None]
  - DIARRHOEA [None]
  - BLOOD BILIRUBIN INCREASED [None]
  - LOSS OF CONSCIOUSNESS [None]
  - BACK PAIN [None]
  - PRURITUS [None]
